FAERS Safety Report 9729088 (Version 1)
Quarter: 2013Q4

REPORT INFORMATION
  Report Type: Spontaneous
  Country: US (occurrence: US)
  Receive Date: 20131204
  Receipt Date: 20131204
  Transmission Date: 20140711
  Serious: Yes (Hospitalization, Other)
  Sender: FDA-Public Use
  Company Number: CHPA2013US017759

PATIENT
  Age: 83 Year
  Sex: Male

DRUGS (1)
  1. KERI ORIGINAL [Suspect]
     Indication: OFF LABEL USE
     Dosage: UNK, UNK
     Dates: start: 2012

REACTIONS (2)
  - Arrhythmia [Unknown]
  - Therapeutic response unexpected [Unknown]
